FAERS Safety Report 11744109 (Version 2)
Quarter: 2016Q1

REPORT INFORMATION
  Report Type: Report from Study
  Country: US (occurrence: US)
  Receive Date: 20151116
  Receipt Date: 20160126
  Transmission Date: 20160525
  Serious: Yes (Other)
  Sender: FDA-Public Use
  Company Number: US-CELGENE-USA-2015111711

PATIENT

DRUGS (2)
  1. ABRAXANE [Suspect]
     Active Substance: PACLITAXEL
     Indication: METASTATIC MALIGNANT MELANOMA
     Dosage: 150 MILLIGRAM/SQ. METER
     Route: 041
  2. IPILIMUMAB [Suspect]
     Active Substance: IPILIMUMAB
     Indication: METASTATIC MALIGNANT MELANOMA
     Route: 065

REACTIONS (4)
  - Hypophysitis [Unknown]
  - Diarrhoea [Unknown]
  - Transaminases increased [Unknown]
  - Arthralgia [Unknown]
